FAERS Safety Report 10263369 (Version 1)
Quarter: 2014Q2

REPORT INFORMATION
  Report Type: Spontaneous
  Country: DK (occurrence: FR)
  Receive Date: 20140626
  Receipt Date: 20140626
  Transmission Date: 20141212
  Serious: Yes (Death)
  Sender: FDA-Public Use
  Company Number: FR-FRI-1000068498

PATIENT
  Age: 0 Year
  Sex: Female

DRUGS (1)
  1. ESCITALOPRAM [Suspect]
     Dosage: 10 MG
     Route: 064
     Dates: start: 20130402, end: 20130910

REACTIONS (3)
  - Congenital diaphragmatic hernia [Fatal]
  - Abortion induced [Fatal]
  - Exposure during pregnancy [Fatal]
